FAERS Safety Report 9118257 (Version 1)
Quarter: 2013Q1

REPORT INFORMATION
  Report Type: Report from Study
  Country: US (occurrence: US)
  Receive Date: 20130129
  Receipt Date: 20130129
  Transmission Date: 20140127
  Serious: No
  Sender: FDA-Public Use
  Company Number: US-ABBOTT-12P-163-0942182-00

PATIENT
  Age: 33 Year
  Sex: Female

DRUGS (2)
  1. HUMIRA 40 MG/0.8 ML PEN [Suspect]
     Indication: PSORIASIS
     Route: 058
     Dates: start: 20120427, end: 20120427
  2. HUMIRA 40 MG/0.8 ML PEN [Suspect]
     Route: 058
     Dates: start: 20120504

REACTIONS (5)
  - Incorrect storage of drug [Recovered/Resolved]
  - Poor quality drug administered [Recovered/Resolved]
  - Incorrect dose administered [Unknown]
  - Incorrect storage of drug [Recovered/Resolved]
  - Poor quality drug administered [Recovered/Resolved]
